FAERS Safety Report 4918546-6 (Version None)
Quarter: 2006Q1

REPORT INFORMATION
  Report Type: 
  Country: None (occurrence: None)
  Receive Date: 20060222
  Receipt Date: 20060124
  Transmission Date: 20060701
  Serious: Yes (Life-Threatening, Other)
  Sender: FDA-Public Use
  Company Number: US-BRISTOL-MYERS SQUIBB COMPANY-13258249

PATIENT
  Age: 49 Year
  Sex: Female
  Weight: 49 kg

DRUGS (4)
  1. ERBITUX [Suspect]
     Indication: COLORECTAL CANCER
     Dosage: REC'D 16 ML OF A 310 ML DOSE (400 MG/M2). 03-FEB-06: REC'D 12TH DOSE (400 MG/M2, REC'D 106 ML).
     Route: 042
     Dates: start: 20060123, end: 20060123
  2. AVASTIN [Concomitant]
     Dosage: ALSO REC'D ON 03-FEB-2006.
     Dates: start: 20060123, end: 20060123
  3. METHADOSE [Concomitant]
  4. VANCOMYCIN [Concomitant]
     Route: 048

REACTIONS (19)
  - ABDOMINAL PAIN [None]
  - BRONCHOSPASM [None]
  - CHEST PAIN [None]
  - CHILLS [None]
  - DIARRHOEA [None]
  - DYSPNOEA [None]
  - FACE OEDEMA [None]
  - FATIGUE [None]
  - FEELING COLD [None]
  - FLUSHING [None]
  - MENTAL IMPAIRMENT [None]
  - MUSCLE CONTRACTURE [None]
  - MUSCLE SPASMS [None]
  - MYALGIA [None]
  - NAUSEA [None]
  - PAINFUL RESPIRATION [None]
  - TONGUE OEDEMA [None]
  - TREMOR [None]
  - VOMITING [None]
